FAERS Safety Report 5297757-7 (Version None)
Quarter: 2007Q2

REPORT INFORMATION
  Report Type: 
  Country: None (occurrence: None)
  Receive Date: 20070416
  Receipt Date: 20070403
  Transmission Date: 20071010
  Serious: Yes (Hospitalization)
  Sender: FDA-Public Use
  Company Number: US-ELI_LILLY_AND_COMPANY-US200704000825

PATIENT
  Age: 76 Year
  Sex: Female

DRUGS (5)
  1. FORTEO [Suspect]
     Indication: OSTEOPOROSIS
     Dosage: UNK, UNK
     Dates: start: 20070101, end: 20070328
  2. EVISTA [Suspect]
  3. QUINAPRIL [Concomitant]
  4. CALCIUM [Concomitant]
     Dosage: 1200 MG, DAILY (1/D)
  5. PROTONIX [Concomitant]
     Indication: DYSPEPSIA

REACTIONS (13)
  - BLOOD POTASSIUM DECREASED [None]
  - BONE DENSITY DECREASED [None]
  - CHEST PAIN [None]
  - DIZZINESS [None]
  - DRUG INEFFECTIVE [None]
  - FATIGUE [None]
  - FEELING ABNORMAL [None]
  - FRUSTRATION [None]
  - HEART RATE DECREASED [None]
  - HYPOTENSION [None]
  - NAUSEA [None]
  - PHARMACEUTICAL PRODUCT COMPLAINT [None]
  - VENTRICULAR EXTRASYSTOLES [None]
